FAERS Safety Report 9298718 (Version 1)
Quarter: 2013Q2

REPORT INFORMATION
  Report Type: Spontaneous
  Country: US (occurrence: US)
  Receive Date: 20130520
  Receipt Date: 20130520
  Transmission Date: 20140414
  Serious: Yes (Other)
  Sender: FDA-Public Use
  Company Number: US-GLAXOSMITHKLINE-A0790493A

PATIENT
  Age: 72 Year
  Sex: Female
  Weight: 50.9 kg

DRUGS (1)
  1. AVANDIA [Suspect]
     Indication: DIABETES MELLITUS
     Dosage: 2MG PER DAY
     Route: 048
     Dates: start: 200102, end: 200611

REACTIONS (9)
  - Cardiac failure congestive [Unknown]
  - Fluid retention [Unknown]
  - Dyspnoea [Unknown]
  - Chest pain [Unknown]
  - Pericardial haemorrhage [Unknown]
  - Cardiac tamponade [Unknown]
  - Ventricular tachycardia [Unknown]
  - Pulmonary hypertension [Unknown]
  - Pericardial effusion [Unknown]
